FAERS Safety Report 23629580 (Version 1)
Quarter: 2024Q1

REPORT INFORMATION
  Report Type: Spontaneous
  Country: FR (occurrence: FR)
  Receive Date: 20240314
  Receipt Date: 20240314
  Transmission Date: 20240410
  Serious: Yes (Other)
  Sender: FDA-Public Use
  Company Number: FR-CELLTRION INC.-2024FR005809

PATIENT

DRUGS (2)
  1. RITUXIMAB [Suspect]
     Active Substance: RITUXIMAB
     Indication: Hairy cell leukaemia
     Dosage: UNK
     Route: 042
     Dates: start: 20240115, end: 20240115
  2. ZELBORAF [Suspect]
     Active Substance: VEMURAFENIB
     Indication: Product used for unknown indication
     Dosage: UNK
     Route: 048
     Dates: start: 20240117, end: 20240127

REACTIONS (2)
  - Toxic skin eruption [Recovering/Resolving]
  - Intentional product use issue [Unknown]

NARRATIVE: CASE EVENT DATE: 20240124
